FAERS Safety Report 13017007 (Version 1)
Quarter: 2016Q4

REPORT INFORMATION
  Report Type: Spontaneous
  Country: FR (occurrence: FR)
  Receive Date: 20161212
  Receipt Date: 20161212
  Transmission Date: 20170207
  Serious: Yes (Other)
  Sender: FDA-Public Use
  Company Number: FR-AUROBINDO-AUR-APL-2016-15145

PATIENT
  Age: 90 Year
  Sex: Female

DRUGS (1)
  1. RAMIPRIL 5MG [Suspect]
     Active Substance: RAMIPRIL
     Indication: PRODUCT USED FOR UNKNOWN INDICATION
     Dosage: 5 MG, UNK
     Route: 065

REACTIONS (5)
  - Nausea [Recovering/Resolving]
  - Thrombosis [Recovering/Resolving]
  - Vomiting [Recovering/Resolving]
  - Stenosis [Recovering/Resolving]
  - Acute kidney injury [Recovering/Resolving]
